FAERS Safety Report 5577418-7 (Version None)
Quarter: 2007Q4

REPORT INFORMATION
  Report Type: 
  Country: None (occurrence: None)
  Receive Date: 20071228
  Receipt Date: 20071219
  Transmission Date: 20080405
  Serious: Yes (Other)
  Sender: FDA-Public Use
  Company Number: AU-PFIZER INC-2007107430

PATIENT
  Age: 50 Year
  Sex: Female

DRUGS (1)
  1. LIPITOR [Suspect]
     Dosage: DAILY DOSE:20MG

REACTIONS (1)
  - JOINT SPRAIN [None]
